FAERS Safety Report 5197086-6 (Version None)
Quarter: 2007Q1

REPORT INFORMATION
  Report Type: 
  Country: None (occurrence: None)
  Receive Date: 20070103
  Receipt Date: 20061222
  Transmission Date: 20070707
  Serious: Yes (Hospitalization)
  Sender: FDA-Public Use
  Company Number: FR-ELI_LILLY_AND_COMPANY-FR200611005216

PATIENT
  Age: 65 Year
  Sex: Male

DRUGS (6)
  1. GEMZAR [Suspect]
     Indication: BILE DUCT CANCER
     Dosage: 1000 MG/M2, OTHER
     Route: 042
     Dates: start: 20060807, end: 20060905
  2. ELOXATINE /FRA/ [Concomitant]
     Indication: BILE DUCT CANCER
     Dosage: 85 MG/M2, OTHER
     Route: 042
     Dates: start: 20060808, end: 20060906
  3. RIFADIN [Concomitant]
     Indication: PULMONARY TUBERCULOSIS
     Dosage: 300 MG, 2/D
     Route: 048
     Dates: start: 20060818
  4. ISONIAZID [Concomitant]
     Indication: PULMONARY TUBERCULOSIS
     Dosage: UNK, UNKNOWN
     Route: 065
     Dates: start: 20060818
  5. PYRAZINAMIDE [Concomitant]
     Indication: PULMONARY TUBERCULOSIS
     Dosage: UNK, UNKNOWN
     Route: 065
     Dates: start: 20060818
  6. ETHAMBUTOL HYDROCHLORIDE [Concomitant]
     Indication: PULMONARY TUBERCULOSIS
     Dosage: UNK, UNKNOWN
     Route: 065

REACTIONS (3)
  - ARTERITIS [None]
  - KIDNEY FIBROSIS [None]
  - RENAL FAILURE ACUTE [None]
